FAERS Safety Report 10137728 (Version 1)
Quarter: 2014Q2

REPORT INFORMATION
  Report Type: Spontaneous
  Country: US (occurrence: None)
  Receive Date: 20140428
  Receipt Date: 20140428
  Transmission Date: 20141212
  Serious: Yes (Other)
  Sender: FDA-Public Use
  Company Number: None

PATIENT
  Age: 25 Year
  Sex: Male

DRUGS (1)
  1. ADDERALL DP [Suspect]
     Dosage: 10MG/ 2 PILLS, TAKEN BY MOUTH
     Route: 048

REACTIONS (2)
  - Drug ineffective [None]
  - Adverse event [None]
